FAERS Safety Report 7008953 (Version 2)
Quarter: 2019Q1

REPORT INFORMATION
  Report Type: Spontaneous
  Country: GB (occurrence: GB)
  Receive Date: 20090602
  Receipt Date: 20190304
  Transmission Date: 20190418
  Serious: Yes (Disabling, Other)
  Sender: FDA-Public Use
  Company Number: GB-PFIZER INC-2009215594

PATIENT
  Age: 59 Year
  Sex: Male
  Weight: 96 kg

DRUGS (2)
  1. NUROFEN [Concomitant]
     Active Substance: IBUPROFEN
     Dosage: UNK
  2. CHAMPIX [Suspect]
     Active Substance: VARENICLINE TARTRATE
     Indication: SMOKING CESSATION THERAPY
     Dosage: 1 DF, 1X/DAY
     Route: 048
     Dates: start: 20090428, end: 20090428

REACTIONS (3)
  - Confusional state [Recovering/Resolving]
  - Nausea [Recovering/Resolving]
  - Abulia [Recovering/Resolving]

NARRATIVE: CASE EVENT DATE: 20090428
